FAERS Safety Report 8095960-4 (Version None)
Quarter: 2012Q1

REPORT INFORMATION
  Report Type: 
  Country: None (occurrence: None)
  Receive Date: 20120129
  Receipt Date: 20111215
  Transmission Date: 20120608
  Serious: No
  Sender: FDA-Public Use
  Company Number: US-ABBOTT-11P-163-0883662-00

PATIENT
  Age: 62 Year
  Sex: Female

DRUGS (10)
  1. PRAVASTATIN [Concomitant]
     Indication: BLOOD CHOLESTEROL ABNORMAL
  2. FENOFIBRATE [Concomitant]
     Indication: BLOOD CHOLESTEROL ABNORMAL
  3. SLEEPING PILL [Concomitant]
     Indication: PRODUCT USED FOR UNKNOWN INDICATION
     Dosage: AT BEDTIME
  4. CYMBALTA [Concomitant]
     Indication: FIBROMYALGIA
  5. WARFARIN SODIUM [Concomitant]
     Indication: ANTIPHOSPHOLIPID ANTIBODIES
     Dosage: DOSE VARIES
  6. BUMETANIDE [Concomitant]
     Indication: BLOOD PRESSURE
  7. GLYPRIDE [Concomitant]
     Indication: DIABETES MELLITUS
  8. PREDNISONE TAB [Concomitant]
     Indication: PRODUCT USED FOR UNKNOWN INDICATION
  9. HYDROCODONE BITARTRATE [Concomitant]
     Indication: PAIN
     Dosage: AS NEEDED
  10. HUMIRA [Suspect]
     Indication: RHEUMATOID ARTHRITIS
     Dates: start: 20111207

REACTIONS (1)
  - INJECTION SITE PAIN [None]
